APPROVED DRUG PRODUCT: CARBOCAINE
Active Ingredient: MEPIVACAINE HYDROCHLORIDE
Strength: 1.5%
Dosage Form/Route: INJECTABLE;INJECTION
Application: N012250 | Product #005
Applicant: HOSPIRA INC
Approved: Approved Prior to Jan 1, 1982 | RLD: Yes | RS: No | Type: DISCN